FAERS Safety Report 11686494 (Version 1)
Quarter: 2015Q4

REPORT INFORMATION
  Report Type: Spontaneous
  Country: IE (occurrence: IE)
  Receive Date: 20151030
  Receipt Date: 20151030
  Transmission Date: 20160304
  Serious: Yes (Death, Other)
  Sender: FDA-Public Use
  Company Number: IE-SA-2015SA169470

PATIENT
  Age: 78 Year
  Sex: Male
  Weight: 89 kg

DRUGS (3)
  1. ELIQUIS [Suspect]
     Active Substance: APIXABAN
     Indication: ANTICOAGULANT THERAPY
     Route: 065
     Dates: start: 201503, end: 201504
  2. CLEXANE [Suspect]
     Active Substance: ENOXAPARIN SODIUM
     Route: 051
     Dates: start: 201504
  3. INNOHEP [Suspect]
     Active Substance: TINZAPARIN SODIUM
     Route: 058
     Dates: start: 20150330

REACTIONS (4)
  - Post procedural haemorrhage [Fatal]
  - Syncope [Unknown]
  - Sepsis [Fatal]
  - Peritonitis [Fatal]

NARRATIVE: CASE EVENT DATE: 20150401
